FAERS Safety Report 20096851 (Version 1)
Quarter: 2021Q4

REPORT INFORMATION
  Report Type: Report from Study
  Country: GB (occurrence: GB)
  Receive Date: 20211122
  Receipt Date: 20211122
  Transmission Date: 20220303
  Serious: Yes (Hospitalization)
  Sender: FDA-Public Use
  Company Number: GB-ABBVIE-21K-167-4167238-00

PATIENT
  Age: 65 Year
  Sex: Female

DRUGS (2)
  1. CARBIDOPA\LEVODOPA [Suspect]
     Active Substance: CARBIDOPA\LEVODOPA
     Indication: Product used for unknown indication
     Route: 050
  2. CARBIDOPA\LEVODOPA [Suspect]
     Active Substance: CARBIDOPA\LEVODOPA

REACTIONS (7)
  - Device issue [Unknown]
  - Stoma site pain [Unknown]
  - Stoma site erythema [Unknown]
  - Stoma site extravasation [Unknown]
  - Stoma site odour [Unknown]
  - Stoma site haemorrhage [Unknown]
  - Stoma site infection [Unknown]

NARRATIVE: CASE EVENT DATE: 20211117
